FAERS Safety Report 14305398 (Version 1)
Quarter: 2017Q4

REPORT INFORMATION
  Report Type: Spontaneous
  Country: US (occurrence: US)
  Receive Date: 20171219
  Receipt Date: 20171219
  Transmission Date: 20180321
  Serious: Yes (Hospitalization)
  Sender: FDA-Public Use
  Company Number: US-OTSUKA-DJ20102471

PATIENT
  Age: 8 Year
  Sex: Male
  Weight: 36.28 kg

DRUGS (3)
  1. ABILIFY [Suspect]
     Active Substance: ARIPIPRAZOLE
     Indication: OPPOSITIONAL DEFIANT DISORDER
     Dosage: 2.5 MG, UNK
     Route: 065
     Dates: start: 20091221
  2. VYVANSE [Concomitant]
     Active Substance: LISDEXAMFETAMINE DIMESYLATE
     Indication: PRODUCT USED FOR UNKNOWN INDICATION
     Dosage: UNK
     Route: 065
  3. ABILIFY [Suspect]
     Active Substance: ARIPIPRAZOLE
     Indication: ATTENTION DEFICIT/HYPERACTIVITY DISORDER
     Dosage: 2.5 MG, UNK
     Route: 065
     Dates: start: 20091006, end: 20091220

REACTIONS (4)
  - Aggression [Unknown]
  - Impulse-control disorder [Unknown]
  - Somnolence [Unknown]
  - Dysphoria [Unknown]

NARRATIVE: CASE EVENT DATE: 20091006
